FAERS Safety Report 7290743-7 (Version None)
Quarter: 2011Q1

REPORT INFORMATION
  Report Type: 
  Country: None (occurrence: None)
  Receive Date: 20110214
  Receipt Date: 20110131
  Transmission Date: 20110831
  Serious: Yes (Death)
  Sender: FDA-Public Use
  Company Number: US-CELGENEUS-163-21880-11010682

PATIENT
  Sex: Male

DRUGS (2)
  1. DOXIL [Concomitant]
     Route: 065
     Dates: start: 20101112, end: 20101210
  2. REVLIMID [Suspect]
     Indication: MULTIPLE MYELOMA
     Route: 048
     Dates: start: 20101116

REACTIONS (1)
  - PNEUMONIA [None]
